FAERS Safety Report 7519834-X (Version None)
Quarter: 2011Q2

REPORT INFORMATION
  Report Type: 
  Country: None (occurrence: None)
  Receive Date: 20110602
  Receipt Date: 20110523
  Transmission Date: 20111010
  Serious: Yes (Death)
  Sender: FDA-Public Use
  Company Number: AT-UCBSA-033577

PATIENT
  Sex: Male
  Weight: 72 kg

DRUGS (6)
  1. VIMPAT [Suspect]
     Indication: EPILEPSY
  2. KEPPRA [Concomitant]
  3. LAMOTRIGINE [Concomitant]
     Dates: start: 20110205
  4. LEVITRA [Concomitant]
     Indication: ERECTILE DYSFUNCTION
     Dosage: APPROXIMATELY 6 TIMES A YEAR
  5. VIMPAT [Suspect]
     Dates: start: 20110124
  6. DEPAKENE [Concomitant]

REACTIONS (1)
  - SUDDEN CARDIAC DEATH [None]
